FAERS Safety Report 21297275 (Version 1)
Quarter: 2022Q3

REPORT INFORMATION
  Report Type: Spontaneous
  Country: US (occurrence: None)
  Receive Date: 20220902
  Receipt Date: 20220902
  Transmission Date: 20221026
  Serious: Yes (Hospitalization)
  Sender: FDA-Public Use
  Company Number: None

PATIENT
  Age: 55 Year
  Sex: Male
  Weight: 69 kg

DRUGS (1)
  1. LEVOFLOXACIN [Suspect]
     Active Substance: LEVOFLOXACIN
     Indication: Epididymitis
     Dosage: FREQUENCY : DAILY;?
     Route: 048
     Dates: start: 20220610, end: 20220620

REACTIONS (7)
  - Testicular pain [None]
  - Groin pain [None]
  - Deafness bilateral [None]
  - COVID-19 [None]
  - Prostatitis [None]
  - Abscess [None]
  - Staphylococcal bacteraemia [None]

NARRATIVE: CASE EVENT DATE: 20220617
